FAERS Safety Report 23370101 (Version 3)
Quarter: 2024Q1

REPORT INFORMATION
  Report Type: Spontaneous
  Country: DE (occurrence: DE)
  Receive Date: 20240105
  Receipt Date: 20240130
  Transmission Date: 20240410
  Serious: Yes (Hospitalization, Other)
  Sender: FDA-Public Use
  Company Number: None

PATIENT

DRUGS (4)
  1. GONADOTROPHIN, CHORIONIC [Suspect]
     Active Substance: GONADOTROPHIN, CHORIONIC
     Indication: Assisted reproductive technology
     Dosage: 1000 INTERNATIONAL UNIT, ONCE/SINGLE
     Route: 065
     Dates: start: 20231124, end: 20231124
  2. FOLLITROPIN\LUTROPIN ALFA [Suspect]
     Active Substance: FOLLITROPIN\LUTROPIN ALFA
     Indication: Assisted reproductive technology
     Dosage: 300 INTERNATIONAL UNIT, 1 TIME DAILY
     Route: 065
     Dates: start: 20231112, end: 20231122
  3. NAFARELIN ACETATE [Suspect]
     Active Substance: NAFARELIN ACETATE
     Indication: Assisted reproductive technology
     Dosage: 0.2 MG, 1 TIME DAILY
     Route: 065
     Dates: start: 20231123, end: 20231123
  4. NAFARELIN ACETATE [Suspect]
     Active Substance: NAFARELIN ACETATE
     Dosage: 0.4 MG, 1 TIME DAILY
     Route: 065
     Dates: start: 20231028, end: 20231122

REACTIONS (6)
  - Ovarian cyst ruptured [Recovered/Resolved]
  - Intra-abdominal haemorrhage [Recovered/Resolved]
  - Groin pain [Recovered/Resolved]
  - Swelling [Recovered/Resolved]
  - Pelvic haematoma [Recovered/Resolved]
  - Incorrect dose administered [Recovered/Resolved]

NARRATIVE: CASE EVENT DATE: 20231124
